FAERS Safety Report 20124736 (Version 1)
Quarter: 2021Q4

REPORT INFORMATION
  Report Type: Spontaneous
  Country: CN (occurrence: None)
  Receive Date: 20211129
  Receipt Date: 20211129
  Transmission Date: 20220303
  Serious: Yes (Other)
  Sender: FDA-Public Use
  Company Number: CN-ROCHE-2961934

PATIENT
  Age: 43 Year
  Sex: Female

DRUGS (3)
  1. HERCEPTIN [Suspect]
     Active Substance: TRASTUZUMAB
     Indication: Breast cancer
     Dosage: AT 336MG (FIRST DOSE WAS 448MG)
     Route: 065
  2. PERJETA [Suspect]
     Active Substance: PERTUZUMAB
     Indication: Breast cancer
     Dosage: AT 420MG (FIRST DOSE WAS 840MG)
     Route: 065
  3. PACLITAXEL [Concomitant]
     Active Substance: PACLITAXEL
     Indication: Breast cancer
     Dosage: AT 190MG (12MG/M2)
     Route: 041

REACTIONS (4)
  - Neutrophil count decreased [Unknown]
  - Transaminases increased [Unknown]
  - Arrhythmia [Unknown]
  - Supraventricular extrasystoles [Unknown]
